FAERS Safety Report 10293298 (Version 1)
Quarter: 2014Q3

REPORT INFORMATION
  Report Type: Spontaneous
  Country: KR (occurrence: KR)
  Receive Date: 20140710
  Receipt Date: 20140710
  Transmission Date: 20150326
  Serious: Yes (Other)
  Sender: FDA-Public Use
  Company Number: KR-BAUSCH-BL-2014-003116

PATIENT
  Age: 79 Year
  Sex: Male

DRUGS (2)
  1. TRIAMCINOLONE [Suspect]
     Active Substance: TRIAMCINOLONE
     Indication: BACK PAIN
     Route: 008
  2. DEXAMETHASONE. [Suspect]
     Active Substance: DEXAMETHASONE
     Indication: BACK PAIN
     Route: 008

REACTIONS (3)
  - Detachment of retinal pigment epithelium [Recovering/Resolving]
  - Chorioretinopathy [Unknown]
  - Retinal pigment epithelial tear [Not Recovered/Not Resolved]
